FAERS Safety Report 17466633 (Version 3)
Quarter: 2020Q2

REPORT INFORMATION
  Report Type: Spontaneous
  Country: JP (occurrence: JP)
  Receive Date: 20200227
  Receipt Date: 20200522
  Transmission Date: 20200713
  Serious: Yes (Hospitalization)
  Sender: FDA-Public Use
  Company Number: NVSJ2020JP002500

PATIENT
  Age: 67 Year
  Sex: Male

DRUGS (1)
  1. REVOLADE TAB [Suspect]
     Active Substance: ELTROMBOPAG
     Indication: PRODUCT USED FOR UNKNOWN INDICATION
     Dosage: 50 MG
     Route: 048

REACTIONS (1)
  - Psychotic disorder [Unknown]

NARRATIVE: CASE EVENT DATE: 202002
